FAERS Safety Report 24243864 (Version 1)
Quarter: 2024Q3

REPORT INFORMATION
  Report Type: Spontaneous
  Country: IT (occurrence: IT)
  Receive Date: 20240823
  Receipt Date: 20240823
  Transmission Date: 20241017
  Serious: Yes (Other)
  Sender: MERCK
  Company Number: IT-MEDAC-2024-AER-02825

PATIENT
  Age: 81 Year
  Sex: Male

DRUGS (1)
  1. BCG LIVE [Suspect]
     Active Substance: BACILLUS CALMETTE-GUERIN SUBSTRAIN TICE LIVE ANTIGEN
     Indication: Bladder transitional cell carcinoma
     Dosage: INDUCTION THERAPY; 6 WEEKLY INSTILLATIONS
     Route: 043
     Dates: start: 202308, end: 202309

REACTIONS (2)
  - Disseminated Bacillus Calmette-Guerin infection [Recovering/Resolving]
  - Prostatic abscess [Unknown]
